FAERS Safety Report 17262157 (Version 1)
Quarter: 2020Q1

REPORT INFORMATION
  Report Type: Spontaneous
  Country: US (occurrence: US)
  Receive Date: 20200110
  Receipt Date: 20200110
  Transmission Date: 20200409
  Serious: Yes (Hospitalization)
  Sender: FDA-Public Use
  Company Number: None

PATIENT
  Age: 29 Year
  Sex: Male
  Weight: 67.5 kg

DRUGS (1)
  1. CIPROFLOXACIN. [Suspect]
     Active Substance: CIPROFLOXACIN
     Indication: ESCHERICHIA INFECTION
     Dates: start: 20200102, end: 20200104

REACTIONS (8)
  - Hallucination, auditory [None]
  - Tinnitus [None]
  - Ear pain [None]
  - Head discomfort [None]
  - Malaise [None]
  - Abnormal dreams [None]
  - Hypoaesthesia [None]
  - Rash pruritic [None]

NARRATIVE: CASE EVENT DATE: 20200104
